FAERS Safety Report 5598307-8 (Version None)
Quarter: 2008Q1

REPORT INFORMATION
  Report Type: 
  Country: None (occurrence: None)
  Receive Date: 20080116
  Receipt Date: 20080110
  Transmission Date: 20080703
  Serious: Yes (Death)
  Sender: FDA-Public Use
  Company Number: 2008-170271-NL

PATIENT
  Age: 16 Year
  Sex: Female

DRUGS (1)
  1. ETONOGESTREL (BATCH #: 163288/175647) [Suspect]
     Dosage: DF;
     Dates: start: 20071108

REACTIONS (2)
  - COMPLETED SUICIDE [None]
  - HEADACHE [None]
